FAERS Safety Report 16247021 (Version 1)
Quarter: 2019Q2

REPORT INFORMATION
  Report Type: Report from Study
  Country: None (occurrence: CO)
  Receive Date: 20190427
  Receipt Date: 20190427
  Transmission Date: 20190711
  Serious: Yes (Hospitalization, Other)
  Sender: FDA-Public Use
  Company Number: CO-ABBVIE-19K-036-2761762-00

PATIENT
  Sex: Male
  Weight: 63 kg

DRUGS (1)
  1. HUMIRA [Suspect]
     Active Substance: ADALIMUMAB
     Indication: CROHN^S DISEASE
     Route: 058
     Dates: start: 20140729, end: 20190214

REACTIONS (4)
  - Asphyxia [Recovering/Resolving]
  - Anaemia [Recovering/Resolving]
  - Angina pectoris [Recovering/Resolving]
  - Coronary artery disease [Unknown]

NARRATIVE: CASE EVENT DATE: 2019
